FAERS Safety Report 7356254-5 (Version None)
Quarter: 2011Q1

REPORT INFORMATION
  Report Type: 
  Country: None (occurrence: None)
  Receive Date: 20110307
  Receipt Date: 20110223
  Transmission Date: 20110831
  Serious: Yes (Hospitalization)
  Sender: FDA-Public Use
  Company Number: LEO-2011-00220

PATIENT
  Age: 53 Year
  Sex: Female
  Weight: 55 kg

DRUGS (1)
  1. TACLONEX SCALP [Suspect]
     Indication: PSORIASIS
     Dosage: (1 IN 1 D), TOPICAL
     Route: 061
     Dates: start: 20101119, end: 20110111

REACTIONS (5)
  - DERMATITIS PSORIASIFORM [None]
  - MYALGIA [None]
  - ERYTHRODERMIC PSORIASIS [None]
  - OROPHARYNGEAL PAIN [None]
  - ARTHRALGIA [None]
